FAERS Safety Report 9733467 (Version 1)
Quarter: 2013Q4

REPORT INFORMATION
  Report Type: Spontaneous
  Country: JP (occurrence: JP)
  Receive Date: 20131205
  Receipt Date: 20131205
  Transmission Date: 20140711
  Serious: Yes (Death)
  Sender: FDA-Public Use
  Company Number: JP-009507513-1312JPN000822

PATIENT
  Age: 10 Year
  Sex: Female
  Weight: 46 kg

DRUGS (8)
  1. AMITRIPTYLINE HYDROCHLORIDE [Suspect]
     Indication: SCHIZOPHRENIFORM DISORDER
     Dosage: UNK
     Route: 048
  2. AMITRIPTYLINE HYDROCHLORIDE [Suspect]
     Indication: AUTISM SPECTRUM DISORDER
  3. DIAZEPAM [Concomitant]
     Dosage: UNK
  4. TRYPTANOL [Concomitant]
     Dosage: UNK
  5. TOPIRAMATE [Concomitant]
     Dosage: UNK
     Route: 048
  6. PERICIAZINE [Concomitant]
     Dosage: UNK
     Route: 048
  7. SALICYLAMIDE [Concomitant]
     Dosage: UNK
  8. ETHENZAMIDE [Concomitant]

REACTIONS (2)
  - Toxicity to various agents [Fatal]
  - Intentional overdose [Fatal]
